FAERS Safety Report 12808590 (Version 3)
Quarter: 2016Q4

REPORT INFORMATION
  Report Type: Spontaneous
  Country: US (occurrence: US)
  Receive Date: 20161004
  Receipt Date: 20161124
  Transmission Date: 20170207
  Serious: No
  Sender: FDA-Public Use
  Company Number: US-PFIZER INC-2016454308

PATIENT
  Age: 38 Year
  Sex: Female
  Weight: 44.45 kg

DRUGS (6)
  1. CALCIUM [Concomitant]
     Active Substance: CALCIUM
     Dosage: UNK
  2. SEROQUEL [Concomitant]
     Active Substance: QUETIAPINE FUMARATE
     Indication: SLEEP DISORDER
     Dosage: 25 MG, DAILY (Q.H.S)
  3. XELJANZ [Suspect]
     Active Substance: TOFACITINIB CITRATE
     Indication: PSORIATIC ARTHROPATHY
     Dosage: 5 MG, 2X/DAY
     Route: 048
     Dates: start: 201608
  4. METHYLPREDNISOLONE. [Concomitant]
     Active Substance: METHYLPREDNISOLONE
     Indication: PSORIATIC ARTHROPATHY
     Dosage: 8 MG, DAILY (4 MG, TWO TABLETS DAILY)
  5. EFFEXOR XR [Concomitant]
     Active Substance: VENLAFAXINE HYDROCHLORIDE
     Indication: OBSESSIVE THOUGHTS
     Dosage: 37.5 MG, DAILY (Q.H.S)
  6. OMEGA 3 [Concomitant]
     Active Substance: OMEGA-3 FATTY ACIDS
     Indication: PSORIATIC ARTHROPATHY
     Dosage: UNK

REACTIONS (4)
  - Polydipsia [Recovered/Resolved]
  - Headache [Recovering/Resolving]
  - Pollakiuria [Recovering/Resolving]
  - Product use issue [Unknown]
